FAERS Safety Report 4610214-3 (Version None)
Quarter: 2005Q1

REPORT INFORMATION
  Report Type: 
  Country: None (occurrence: None)
  Receive Date: 20050314
  Receipt Date: 20050225
  Transmission Date: 20050727
  Serious: Yes (Hospitalization)
  Sender: FDA-Public Use
  Company Number: 2005-FF-00137FF

PATIENT
  Age: 3 Year

DRUGS (8)
  1. VIRAMUNE [Suspect]
     Indication: HIV INFECTION
     Route: 015
     Dates: end: 20020429
  2. VIDEX [Concomitant]
  3. EPIVIR [Concomitant]
  4. ZIAGEN [Concomitant]
  5. TENOFOVIR (TENOFOVIR) [Concomitant]
  6. ZALCITABINE (ZALCITABINE) [Concomitant]
  7. LOPINAVIR [Concomitant]
  8. RITONAVIR (RITONAVIR) [Concomitant]

REACTIONS (5)
  - CAESAREAN SECTION [None]
  - DEVELOPMENTAL DELAY [None]
  - DRUG EXPOSURE DURING PREGNANCY [None]
  - MENTAL RETARDATION SEVERITY UNSPECIFIED [None]
  - PSYCHOMOTOR RETARDATION [None]
